FAERS Safety Report 5907448-4 (Version None)
Quarter: 2008Q4

REPORT INFORMATION
  Report Type: 
  Country: None (occurrence: None)
  Receive Date: 20081003
  Receipt Date: 20080926
  Transmission Date: 20090506
  Serious: Yes (Other)
  Sender: FDA-Public Use
  Company Number: A0750507A

PATIENT
  Age: 69 Year
  Sex: Female
  Weight: 54.5 kg

DRUGS (4)
  1. AVANDIA [Suspect]
     Dosage: 4MG PER DAY
     Route: 065
     Dates: start: 20060323, end: 20071001
  2. AVANDAMET [Suspect]
     Dosage: 4MG PER DAY
     Route: 065
     Dates: start: 20060323, end: 20071001
  3. METFORMIN HCL [Concomitant]
     Dates: start: 20060402, end: 20080901
  4. HUMALOG [Concomitant]
     Dates: start: 20061221, end: 20061231

REACTIONS (1)
  - MYOCARDIAL INFARCTION [None]
